APPROVED DRUG PRODUCT: CARBOPLATIN
Active Ingredient: CARBOPLATIN
Strength: 150MG/15ML (10MG/ML)
Dosage Form/Route: INJECTABLE;INTRAVENOUS
Application: A077679 | Product #002
Applicant: PHARMACHEMIE BV
Approved: Feb 25, 2009 | RLD: No | RS: No | Type: DISCN